FAERS Safety Report 16533746 (Version 1)
Quarter: 2019Q3

REPORT INFORMATION
  Report Type: Spontaneous
  Country: CN (occurrence: CN)
  Receive Date: 20190704
  Receipt Date: 20190704
  Transmission Date: 20191004
  Serious: Yes (Hospitalization)
  Sender: FDA-Public Use
  Company Number: CN-BAXTER-2019BAX013079

PATIENT
  Age: 47 Year
  Sex: Female
  Weight: 53 kg

DRUGS (6)
  1. 5% GLUCOSE  INJECTION [Suspect]
     Active Substance: DEXTROSE
     Dosage: 5% GLUCOSE INJECTION 100 ML + PIRARUBICIN 40 MG DAY 2, ONCE
     Route: 041
     Dates: start: 20190611, end: 20190611
  2. 0.9% SODIUM CHLORIDE INJECTION [Suspect]
     Active Substance: SODIUM CHLORIDE
     Indication: MEDICATION DILUTION
     Dosage: 0.9% SODIUM CHLORIDE INJECTION 100 ML + CYCLOPHOSPHAMIDE 800 MG DAY 1
     Route: 041
     Dates: start: 20190610, end: 20190610
  3. 5% GLUCOSE  INJECTION [Suspect]
     Active Substance: DEXTROSE
     Indication: MEDICATION DILUTION
     Dosage: 5% GLUCOSE INJECTION 100 ML + PIRARUBICIN 50 MG DAY 1, ONCE
     Route: 041
     Dates: start: 20190610, end: 20190610
  4. ENDOXAN [Suspect]
     Active Substance: CYCLOPHOSPHAMIDE
     Indication: BREAST CANCER
     Dosage: 0.9% SODIUM CHLORIDE INJECTION 100 ML + CYCLOPHOSPHAMIDE 800 MG DAY 1
     Route: 041
     Dates: start: 20190610, end: 20190610
  5. PIRARUBICIN HYDROCHLORIDE [Suspect]
     Active Substance: PIRARUBICIN HYDROCHLORIDE
     Dosage: 5% GLUCOSE INJECTION 100 ML + PIRARUBICIN 40 MG DAY 2
     Route: 041
     Dates: start: 20190611, end: 20190611
  6. PIRARUBICIN HYDROCHLORIDE [Suspect]
     Active Substance: PIRARUBICIN HYDROCHLORIDE
     Indication: BREAST CANCER
     Dosage: 5% GLUCOSE INJECTION 100 ML + PIRARUBICIN 50 MG DAY 1, ONCE
     Route: 041
     Dates: start: 20190610, end: 20190610

REACTIONS (1)
  - Bone marrow failure [Recovered/Resolved]

NARRATIVE: CASE EVENT DATE: 20190618
